FAERS Safety Report 12684692 (Version 8)
Quarter: 2018Q3

REPORT INFORMATION
  Report Type: Report from Study
  Country: JP (occurrence: JP)
  Receive Date: 20160825
  Receipt Date: 20180920
  Transmission Date: 20181010
  Serious: Yes (Hospitalization, Other)
  Sender: FDA-Public Use
  Company Number: JP-JNJFOC-20160818269

PATIENT
  Age: 55 Year
  Sex: Male

DRUGS (7)
  1. BEZATOL [Concomitant]
     Active Substance: BEZAFIBRATE
     Indication: HYPERLIPIDAEMIA
     Route: 048
     Dates: start: 20140401
  2. AZULFIDINE EN?TABS [Concomitant]
     Active Substance: SULFASALAZINE
     Indication: RHEUMATOID ARTHRITIS
     Route: 048
     Dates: start: 20141010
  3. TIVICAY [Suspect]
     Active Substance: DOLUTEGRAVIR SODIUM
     Indication: HIV INFECTION
     Route: 048
     Dates: start: 20150301
  4. VALSARTAN. [Concomitant]
     Active Substance: VALSARTAN
     Indication: HYPERTENSION
     Route: 048
     Dates: start: 20150403
  5. EDURANT [Suspect]
     Active Substance: RILPIVIRINE HYDROCHLORIDE
     Indication: HIV INFECTION
     Route: 048
     Dates: start: 20150301
  6. RIMATIL [Concomitant]
     Active Substance: BUCILLAMINE
     Indication: RHEUMATOID ARTHRITIS
     Route: 048
     Dates: start: 20140401
  7. ALOSITOL [Concomitant]
     Active Substance: ALLOPURINOL
     Indication: HYPERURICAEMIA
     Route: 048
     Dates: start: 20140401

REACTIONS (2)
  - Type 2 diabetes mellitus [Recovering/Resolving]
  - Glaucoma [Not Recovered/Not Resolved]

NARRATIVE: CASE EVENT DATE: 20150515
